FAERS Safety Report 9519307 (Version 2)
Quarter: 2014Q1

REPORT INFORMATION
  Report Type: Spontaneous
  Country: US (occurrence: None)
  Receive Date: 20130305
  Receipt Date: 20140306
  Transmission Date: 20141002
  Serious: Yes (Other)
  Sender: FDA-Public Use
  Company Number: 163-21880-12110012

PATIENT
  Age: 65 Year
  Sex: Male

DRUGS (7)
  1. REVLIMID [Suspect]
     Indication: PLASMA CELL MYELOMA
     Dosage: 25 MG, 21 IN 21 D, PO
     Route: 048
     Dates: start: 20100419
  2. CLONAZEPAM [Concomitant]
  3. CELEXA (CITALOPRAM HYDROBROMIDE) [Concomitant]
  4. SKELAXIN (METAXALONE) [Concomitant]
  5. LACTASE (TILACTASE) [Concomitant]
  6. PREDNISONE [Concomitant]
  7. AMOXICILLIN [Concomitant]

REACTIONS (7)
  - Abdominal distension [None]
  - Abdominal pain upper [None]
  - Diarrhoea [None]
  - Influenza like illness [None]
  - Fatigue [None]
  - Depression [None]
  - Anxiety [None]
